FAERS Safety Report 25934848 (Version 1)
Quarter: 2025Q4

REPORT INFORMATION
  Report Type: Spontaneous
  Country: GB (occurrence: GB)
  Receive Date: 20251017
  Receipt Date: 20251017
  Transmission Date: 20260118
  Serious: Yes (Other)
  Sender: RANBAXY
  Company Number: GB-MHRA-TPP12474272C27673884YC1759507825178

PATIENT
  Age: 26 Year
  Sex: Female
  Weight: 50 kg

DRUGS (25)
  1. CIPROFLOXACIN [Suspect]
     Active Substance: CIPROFLOXACIN
     Indication: Ill-defined disorder
     Dosage: 250 MILLIGRAM, BID
     Route: 065
     Dates: start: 20250908, end: 20250913
  2. AMOXICILLIN [Concomitant]
     Active Substance: AMOXICILLIN
     Indication: Ill-defined disorder
     Dosage: TAKE ONE 3 TIMES/DAY
     Route: 065
     Dates: start: 20250724, end: 20250729
  3. DOXYCYCLINE [Concomitant]
     Active Substance: DOXYCYCLINE
     Indication: Ill-defined disorder
     Dosage: TWO NOW THEN ONE DAILY
     Route: 065
     Dates: start: 20250729, end: 20250803
  4. TRIMETHOPRIM [Concomitant]
     Active Substance: TRIMETHOPRIM
     Indication: Ill-defined disorder
     Dosage: TAKE ONE TWICE DAILY
     Route: 065
     Dates: start: 20250805, end: 20250812
  5. CHLORHEXIDINE GLUCONATE [Concomitant]
     Active Substance: CHLORHEXIDINE GLUCONATE
     Indication: Ill-defined disorder
     Dosage: USE TWICE DAILY
     Route: 065
     Dates: start: 20250820, end: 20250825
  6. MUPIROCIN [Concomitant]
     Active Substance: MUPIROCIN
     Indication: Ill-defined disorder
     Dosage: APPLY TO THE AFFECTED NOSTRIL(S) THREE TIMES DA...
     Route: 065
     Dates: start: 20250820, end: 20250825
  7. POLYETHYLENE GLYCOLS [Concomitant]
     Active Substance: POLYETHYLENE GLYCOLS
     Indication: Ill-defined disorder
     Dosage: TWO SACHETS WITH WATER ONCE DAILY FOR CONSTIPAT...
     Route: 065
     Dates: start: 20250827, end: 20250910
  8. ALVERINE CITRATE [Concomitant]
     Active Substance: ALVERINE CITRATE
     Indication: Ill-defined disorder
     Dosage: TAKE ONE 2-3 TIMES/DAY
     Route: 065
     Dates: start: 20250908
  9. ETHINYL ESTRADIOL\LEVONORGESTREL [Concomitant]
     Active Substance: ETHINYL ESTRADIOL\LEVONORGESTREL
     Indication: Ill-defined disorder
     Dosage: 1 A DAY AT THE SAME TIME DAILY. IF BLEEDING FOR...
     Route: 065
     Dates: start: 20230606
  10. FAMOTIDINE [Concomitant]
     Active Substance: FAMOTIDINE
     Indication: Ill-defined disorder
     Dosage: TAKE ONE TABLET TWICE DAILY
     Route: 065
     Dates: start: 20231004
  11. CARBOCYSTEINE [Concomitant]
     Active Substance: CARBOCYSTEINE
     Indication: Ill-defined disorder
     Dosage: TAKE TWO TWICE DAILY
     Route: 065
     Dates: start: 20240322
  12. Cetraben [Concomitant]
     Indication: Ill-defined disorder
     Dosage: APPLY BD MDU
     Route: 065
     Dates: start: 20240322
  13. IVABRADINE [Concomitant]
     Active Substance: IVABRADINE
     Indication: Ill-defined disorder
     Dosage: TAKE ONE TWICE DAILY
     Route: 065
     Dates: start: 20240322
  14. SERTRALINE [Concomitant]
     Active Substance: SERTRALINE HYDROCHLORIDE
     Indication: Ill-defined disorder
     Dosage: TAKE ONE DAILY
     Route: 065
     Dates: start: 20240322, end: 20250903
  15. FEXOFENADINE [Concomitant]
     Active Substance: FEXOFENADINE HYDROCHLORIDE
     Indication: Ill-defined disorder
     Dosage: TAKE ONE TABLET 2-3 TIMES PER DAY DEPENDING ON ...
     Route: 065
     Dates: start: 20240322
  16. Cyanocobal [Concomitant]
     Indication: Ill-defined disorder
     Dosage: TAKE ONE DAILY BETWEEN MEALS
     Route: 065
     Dates: start: 20240408
  17. CELECOXIB [Concomitant]
     Active Substance: CELECOXIB
     Indication: Ill-defined disorder
     Dosage: TAKE ONE CAPSULE DAILY FOR PAIN RELIEF
     Route: 065
     Dates: start: 20240715
  18. PREGABALIN [Concomitant]
     Active Substance: PREGABALIN
     Indication: Ill-defined disorder
     Dosage: TAKE ONE CAPSULE TWICE DAILY FOR PAIN RELIEF
     Route: 065
     Dates: start: 20240715
  19. BISACODYL [Concomitant]
     Active Substance: BISACODYL
     Indication: Ill-defined disorder
     Dosage: TAKE TWO AT NIGHT
     Route: 065
     Dates: start: 20241029
  20. LACTULOSE [Concomitant]
     Active Substance: LACTULOSE
     Indication: Ill-defined disorder
     Dosage: 15ML TWICE DAILY
     Route: 065
     Dates: start: 20241107
  21. VENTOLIN [Concomitant]
     Active Substance: ALBUTEROL SULFATE
     Indication: Ill-defined disorder
     Dosage: INHALE 2 DOSES AS NEEDED
     Route: 065
     Dates: start: 20250121
  22. MIRABEGRON [Concomitant]
     Active Substance: MIRABEGRON
     Indication: Ill-defined disorder
     Dosage: TAKE ONE TABLET ONCE DAILY
     Route: 065
     Dates: start: 20250408
  23. MONTELUKAST [Concomitant]
     Active Substance: MONTELUKAST
     Indication: Ill-defined disorder
     Dosage: TAKE ONE AT NIGHT
     Route: 065
     Dates: start: 20250408
  24. MORPHINE SULFATE [Concomitant]
     Active Substance: MORPHINE SULFATE
     Indication: Ill-defined disorder
     Dosage: TAKE 20-25ML UP TO FOUR TIMES DAILY
     Route: 065
     Dates: start: 20250410
  25. FOLIC ACID [Concomitant]
     Active Substance: FOLIC ACID
     Indication: Ill-defined disorder
     Dosage: TAKE ONE DAILY
     Route: 065
     Dates: start: 20250618, end: 20250926

REACTIONS (2)
  - Arthralgia [Unknown]
  - Ehlers-Danlos syndrome [Recovering/Resolving]

NARRATIVE: CASE EVENT DATE: 20251002
